FAERS Safety Report 16051211 (Version 1)
Quarter: 2019Q2

REPORT INFORMATION
  Report Type: Spontaneous
  Country: US (occurrence: US)
  Receive Date: 20190307
  Receipt Date: 20190307
  Transmission Date: 20190711
  Serious: Yes (Hospitalization)
  Sender: FDA-Public Use
  Company Number: None

PATIENT
  Age: 55 Year
  Sex: Female
  Weight: 66.6 kg

DRUGS (1)
  1. AJOVY [Suspect]
     Active Substance: FREMANEZUMAB-VFRM
     Indication: MIGRAINE PROPHYLAXIS
     Dosage: ?          QUANTITY:1 INJECTION(S);OTHER FREQUENCY:MONTHLY;?
     Route: 058
     Dates: start: 20190101

REACTIONS (12)
  - Nausea [None]
  - Headache [None]
  - Tremor [None]
  - Chest pain [None]
  - Tinnitus [None]
  - Cold sweat [None]
  - Vomiting [None]
  - Vital functions abnormal [None]
  - Confusional state [None]
  - Cognitive disorder [None]
  - Palpitations [None]
  - Thyroid disorder [None]
